FAERS Safety Report 21766206 (Version 1)
Quarter: 2022Q4

REPORT INFORMATION
  Report Type: Spontaneous
  Country: US (occurrence: None)
  Receive Date: 20221221
  Receipt Date: 20221221
  Transmission Date: 20230113
  Serious: Yes (unspecified)
  Sender: FDA-Public Use
  Company Number: None

PATIENT
  Age: 34 Year
  Sex: Male
  Weight: 70.3 kg

DRUGS (5)
  1. INFLECTRA [Suspect]
     Active Substance: INFLIXIMAB-DYYB
     Indication: Proctitis ulcerative
     Dosage: FREQUENCY : ONCE;?
     Route: 041
     Dates: start: 20221209, end: 20221209
  2. INFLECTRA [Suspect]
     Active Substance: INFLIXIMAB-DYYB
     Indication: Rectal haemorrhage
  3. Diphenhydramine 25 mg IVP [Concomitant]
     Dates: start: 20221209, end: 20221209
  4. Hydrocortisone 100 mg IVP [Concomitant]
     Dates: start: 20221209, end: 20221209
  5. EPIPEN [Concomitant]
     Active Substance: EPINEPHRINE
     Dates: start: 20221209, end: 20221209

REACTIONS (4)
  - Chest discomfort [None]
  - Feeling hot [None]
  - Erythema [None]
  - Infusion related reaction [None]

NARRATIVE: CASE EVENT DATE: 20221209
